FAERS Safety Report 23364320 (Version 1)
Quarter: 2024Q1

REPORT INFORMATION
  Report Type: Spontaneous
  Country: CA (occurrence: CA)
  Receive Date: 20240104
  Receipt Date: 20240104
  Transmission Date: 20240410
  Serious: Yes (Other)
  Sender: FDA-Public Use
  Company Number: CA-GLAXOSMITHKLINE-CA2024000022

PATIENT

DRUGS (1)
  1. FLOVENT HFA [Suspect]
     Active Substance: FLUTICASONE PROPIONATE
     Indication: Respiratory symptom
     Dosage: 50 UG, QD X2/ DAY
     Dates: start: 20180224

REACTIONS (3)
  - Dental caries [Recovered/Resolved]
  - Tooth erosion [Unknown]
  - Dental caries [Unknown]

NARRATIVE: CASE EVENT DATE: 20230521
